FAERS Safety Report 22344560 (Version 1)
Quarter: 2023Q2

REPORT INFORMATION
  Report Type: Report from Study
  Country: US (occurrence: None)
  Receive Date: 20230519
  Receipt Date: 20230519
  Transmission Date: 20230722
  Serious: Yes (Other)
  Sender: FDA-Public Use
  Company Number: 2023A112280

PATIENT
  Sex: Female

DRUGS (1)
  1. CALQUENCE [Suspect]
     Active Substance: ACALABRUTINIB
     Indication: Extranodal marginal zone B-cell lymphoma (MALT type)
     Route: 048
     Dates: start: 20221112

REACTIONS (11)
  - Cardiac failure congestive [Unknown]
  - Anaemia [Unknown]
  - Peripheral swelling [Unknown]
  - Pain in extremity [Unknown]
  - Dysphagia [Unknown]
  - Dry mouth [Unknown]
  - Platelet count decreased [Unknown]
  - Haemoglobin decreased [Unknown]
  - Anxiety [Unknown]
  - Neutrophil count abnormal [Unknown]
  - Product dose omission issue [Unknown]
